FAERS Safety Report 5054557-0 (Version None)
Quarter: 2006Q3

REPORT INFORMATION
  Report Type: 
  Country: None (occurrence: None)
  Receive Date: 20060714
  Receipt Date: 20060626
  Transmission Date: 20061208
  Serious: Yes (Death)
  Sender: FDA-Public Use
  Company Number: DE200606005451

PATIENT
  Age: 39 Year
  Sex: Male

DRUGS (6)
  1. ZYPREXA [Suspect]
     Indication: SCHIZOPHRENIA
     Dosage: 20 MG, DAILY (1/D), ORAL
     Route: 048
     Dates: start: 20060319, end: 20060411
  2. POLAMIDON (METHADONE HYDROCHLORIDE) [Concomitant]
  3. TAVOR (LORAZEPAM) [Concomitant]
  4. LANITOP (METILDIGOXIN) [Concomitant]
  5. ISOKET RETARD (ISOSORBIDE DINITRATE) [Concomitant]
  6. HCT (HYDROCHLOROTHIAZIDE) [Concomitant]

REACTIONS (1)
  - ARRHYTHMIA [None]
